FAERS Safety Report 24663752 (Version 1)
Quarter: 2024Q4

REPORT INFORMATION
  Report Type: Spontaneous
  Country: US (occurrence: US)
  Receive Date: 20241126
  Receipt Date: 20241126
  Transmission Date: 20250115
  Serious: Yes (Other)
  Sender: AUROBINDO
  Company Number: US-MLMSERVICE-20240805-PI152046-00150-1

PATIENT
  Age: 50 Year
  Sex: Female
  Weight: 62 kg

DRUGS (5)
  1. AMPHOTERICIN B [Suspect]
     Active Substance: AMPHOTERICIN B
     Indication: Meningitis coccidioides
     Dosage: UNK (LIPOSOMAL AMPHOTERICIN WAS CONTINUED AT THRICE WEEKLY DOSING FOR 6 WEEKS)
     Route: 042
  2. FLUCONAZOLE [Suspect]
     Active Substance: FLUCONAZOLE
     Indication: Meningitis coccidioides
     Dosage: 800 MILLIGRAM, DAILY (12.9 MG/KG)
     Route: 048
  3. VORICONAZOLE [Suspect]
     Active Substance: VORICONAZOLE
     Indication: Meningitis coccidioides
     Dosage: 300 MILLIGRAM, TWO TIMES A DAY (4.8 MG/KG TWICE DAILY)
     Route: 042
  4. VORICONAZOLE [Suspect]
     Active Substance: VORICONAZOLE
     Dosage: 350 MILLILITER, TWO TIMES A DAY  (5.6 MG/KG)
     Route: 042
  5. POSACONAZOLE [Concomitant]
     Active Substance: POSACONAZOLE
     Indication: Product used for unknown indication
     Dosage: 400 MILLIGRAM, DAILY
     Route: 065

REACTIONS (4)
  - Alopecia [Recovered/Resolved]
  - Cheilitis [Unknown]
  - Periostitis [Unknown]
  - Drug ineffective [Unknown]
